FAERS Safety Report 16283446 (Version 1)
Quarter: 2019Q2

REPORT INFORMATION
  Report Type: Spontaneous
  Country: US (occurrence: US)
  Receive Date: 20190507
  Receipt Date: 20190507
  Transmission Date: 20190711
  Serious: No
  Sender: FDA-Public Use
  Company Number: US-SA-2019SA110289

PATIENT
  Age: 37 Year
  Sex: Female

DRUGS (2)
  1. CABLIVI [Suspect]
     Active Substance: CAPLACIZUMAB-YHDP
     Indication: THROMBOTIC THROMBOCYTOPENIC PURPURA
     Dosage: QD
     Route: 058
     Dates: start: 20190409, end: 20190413
  2. CABLIVI [Suspect]
     Active Substance: CAPLACIZUMAB-YHDP
     Indication: THROMBOTIC MICROANGIOPATHY

REACTIONS (3)
  - Screaming [Unknown]
  - Arthralgia [Unknown]
  - Liver function test abnormal [Recovering/Resolving]

NARRATIVE: CASE EVENT DATE: 201904
